FAERS Safety Report 5342617-6 (Version None)
Quarter: 2007Q2

REPORT INFORMATION
  Report Type: 
  Country: None (occurrence: None)
  Receive Date: 20070416
  Receipt Date: 20070305
  Transmission Date: 20071010
  Serious: No
  Sender: FDA-Public Use
  Company Number: 2007SP000777

PATIENT
  Age: 44 Year
  Sex: Female
  Weight: 70.3075 kg

DRUGS (8)
  1. LUNESTA [Suspect]
     Indication: INSOMNIA
     Dosage: 3 MG;PRN;ORAL
     Route: 048
     Dates: start: 20070228
  2. ALLERGY [Concomitant]
  3. OXYBUTYNIN CHLORIDE [Concomitant]
  4. ALTACE [Concomitant]
  5. PREVACID [Concomitant]
  6. MOBIC [Concomitant]
  7. ASPIRIN [Concomitant]
  8. VITAMIN CAP [Concomitant]

REACTIONS (1)
  - DYSGEUSIA [None]
